FAERS Safety Report 21692311 (Version 1)
Quarter: 2022Q4

REPORT INFORMATION
  Report Type: Spontaneous
  Country: CH (occurrence: CH)
  Receive Date: 20221207
  Receipt Date: 20221207
  Transmission Date: 20230112
  Serious: Yes (Hospitalization)
  Sender: FDA-Public Use
  Company Number: None

PATIENT
  Age: 25 Year
  Sex: Female
  Weight: 51 kg

DRUGS (1)
  1. OCREVUS [Suspect]
     Active Substance: OCRELIZUMAB
     Indication: Multiple sclerosis
     Dosage: NO INFORMATION ON THE DOSAGE AVAILABLE, ADMINISTRATION EVERY 6 MONTHS UNTIL 04/2022
     Route: 042
     Dates: start: 2020, end: 202204

REACTIONS (1)
  - Pelvic abscess [Not Recovered/Not Resolved]

NARRATIVE: CASE EVENT DATE: 20220929
